FAERS Safety Report 19894732 (Version 2)
Quarter: 2021Q4

REPORT INFORMATION
  Report Type: Spontaneous
  Country: KR (occurrence: KR)
  Receive Date: 20210928
  Receipt Date: 20211005
  Transmission Date: 20220303
  Serious: Yes (Hospitalization, Other)
  Sender: FDA-Public Use
  Company Number: KR-VISTAPHARM, INC.-VER202109-001960

PATIENT
  Age: 44 Year
  Sex: Male

DRUGS (2)
  1. LACTULOSE [Suspect]
     Active Substance: LACTULOSE
     Indication: Alcoholic liver disease
     Dosage: UNKNOWN
     Route: 054
  2. LACTULOSE [Suspect]
     Active Substance: LACTULOSE
     Indication: Hepatic encephalopathy

REACTIONS (2)
  - Osmotic demyelination syndrome [Unknown]
  - Hypernatraemia [Recovered/Resolved]
